FAERS Safety Report 8538935-0 (Version None)
Quarter: 2012Q3

REPORT INFORMATION
  Report Type: 
  Country: None (occurrence: None)
  Receive Date: 20120726
  Receipt Date: 20120718
  Transmission Date: 20120928
  Serious: Yes (Other)
  Sender: FDA-Public Use
  Company Number: CA-JNJFOC-20120710204

PATIENT
  Sex: Female
  Weight: 74.9 kg

DRUGS (4)
  1. REMICADE [Suspect]
     Indication: CROHN'S DISEASE
     Dosage: TOTAL OF 32 INFUSIONS
     Route: 042
  2. CITALOPRAM HYDROBROMIDE [Concomitant]
     Route: 065
  3. PALAFER [Concomitant]
     Route: 065
  4. RABEPRAZOLE SODIUM [Concomitant]
     Route: 065

REACTIONS (1)
  - ANASTOMOTIC STENOSIS [None]
